FAERS Safety Report 6656051-X (Version None)
Quarter: 2010Q1

REPORT INFORMATION
  Report Type: 
  Country: None (occurrence: None)
  Receive Date: 20100329
  Receipt Date: 20100326
  Transmission Date: 20100710
  Serious: Yes (Other)
  Sender: FDA-Public Use
  Company Number: A0834150A

PATIENT
  Sex: Male
  Weight: 72.7 kg

DRUGS (10)
  1. ADVAIR DISKUS 100/50 [Suspect]
     Indication: ASTHMA
     Route: 055
     Dates: start: 20010101
  2. ADVAIR DISKUS 100/50 [Suspect]
     Route: 055
     Dates: start: 20080808
  3. EXERCISE [Concomitant]
  4. VERAMYST [Concomitant]
     Route: 045
  5. CALCIUM SUPPLEMENT [Concomitant]
  6. FLOMAX [Concomitant]
  7. FLONASE [Concomitant]
     Route: 045
     Dates: end: 20080721
  8. NASACORT [Concomitant]
     Indication: ASTHMA
     Route: 045
     Dates: start: 20080721, end: 20090113
  9. ATROVENT [Concomitant]
     Indication: ASTHMA
     Dates: start: 20091110
  10. COMBIVENT [Concomitant]
     Indication: ASTHMA
     Dates: start: 20100209

REACTIONS (7)
  - ASTHENIA [None]
  - CATARACT [None]
  - DYSPHONIA [None]
  - MUSCLE ATROPHY [None]
  - MUSCULAR WEAKNESS [None]
  - TREMOR [None]
  - WEIGHT DECREASED [None]
